FAERS Safety Report 5893980-9 (Version None)
Quarter: 2008Q3

REPORT INFORMATION
  Report Type: 
  Country: None (occurrence: None)
  Receive Date: 20080923
  Receipt Date: 20080903
  Transmission Date: 20090109
  Serious: No
  Sender: FDA-Public Use
  Company Number: US-B.I. PHARMACEUTICALS,INC./RIDGEFIELD-2008-BP-14167BP

PATIENT
  Age: 72 Year
  Sex: Female

DRUGS (5)
  1. ZANTAC 150 [Suspect]
     Indication: GASTROOESOPHAGEAL REFLUX DISEASE
     Dosage: 300MG
     Route: 048
     Dates: start: 20080827, end: 20080901
  2. ZANTAC 150 [Suspect]
     Dosage: 150MG
     Route: 048
     Dates: start: 20080801, end: 20080827
  3. ATENOLOL [Concomitant]
     Indication: HYPERTENSION
  4. BUMEX [Concomitant]
     Indication: HYPERTENSION
  5. POTASSIUM SUPPLEMENT [Concomitant]
     Indication: HYPERTENSION

REACTIONS (1)
  - INSOMNIA [None]
